FAERS Safety Report 23582058 (Version 8)
Quarter: 2025Q3

REPORT INFORMATION
  Report Type: Spontaneous
  Country: US (occurrence: US)
  Receive Date: 20240229
  Receipt Date: 20250828
  Transmission Date: 20251021
  Serious: No
  Sender: SANOFI AVENTIS
  Company Number: US-SA-SAC20240223000786

PATIENT
  Age: 23 Year
  Sex: Male
  Weight: 180 kg

DRUGS (6)
  1. DUPIXENT [Suspect]
     Active Substance: DUPILUMAB
     Indication: Nasal polyps
     Dosage: 300 MG, QOW
     Route: 058
     Dates: start: 20240130, end: 2024
  2. DUPIXENT [Suspect]
     Active Substance: DUPILUMAB
     Indication: Asthma
     Dosage: 300 MG, Q3W
     Route: 058
     Dates: start: 20240206
  3. DUPIXENT [Suspect]
     Active Substance: DUPILUMAB
     Dosage: 300 MG, QOW
     Route: 058
     Dates: end: 2025
  4. ADVAIR HFA [Concomitant]
     Active Substance: FLUTICASONE PROPIONATE\SALMETEROL XINAFOATE
     Indication: Asthma
     Route: 055
  5. MONTELUKAST [Concomitant]
     Active Substance: MONTELUKAST
     Indication: Asthma
     Route: 048
  6. ALLEGRA ALLERGY [Concomitant]
     Active Substance: FEXOFENADINE HYDROCHLORIDE
     Indication: Hypersensitivity
     Route: 048

REACTIONS (19)
  - Muscle spasms [Recovered/Resolved]
  - Injection site mass [Recovered/Resolved]
  - Cough [Recovering/Resolving]
  - Migraine [Recovering/Resolving]
  - Nasal congestion [Recovering/Resolving]
  - Condition aggravated [Recovering/Resolving]
  - Wheezing [Recovering/Resolving]
  - Upper-airway cough syndrome [Unknown]
  - Nasal obstruction [Unknown]
  - Dyspnoea [Unknown]
  - Condition aggravated [Unknown]
  - Ear infection [Recovered/Resolved]
  - Ocular hyperaemia [Unknown]
  - Eye pruritus [Unknown]
  - Hypersensitivity [Unknown]
  - Lacrimation increased [Unknown]
  - Pruritus [Unknown]
  - Sneezing [Unknown]
  - Intentional product misuse [Unknown]

NARRATIVE: CASE EVENT DATE: 20240206
